FAERS Safety Report 9553942 (Version 1)
Quarter: 2013Q3

REPORT INFORMATION
  Report Type: Spontaneous
  Country: US (occurrence: None)
  Receive Date: 20130815
  Receipt Date: 20130815
  Transmission Date: 20140515
  Serious: No
  Sender: FDA-Public Use
  Company Number: ADR-2013-00267

PATIENT
  Sex: Female

DRUGS (2)
  1. BACLOFEN [Suspect]
     Indication: MUSCLE SPASTICITY
  2. SUFENTANIL [Concomitant]

REACTIONS (5)
  - Malaise [None]
  - Staphylococcal infection [None]
  - Pain [None]
  - Muscle spasticity [None]
  - Mental status changes [None]
